FAERS Safety Report 7358485-7 (Version None)
Quarter: 2011Q1

REPORT INFORMATION
  Report Type: 
  Country: None (occurrence: None)
  Receive Date: 20110317
  Receipt Date: 20110304
  Transmission Date: 20110831
  Serious: Yes (Hospitalization)
  Sender: FDA-Public Use
  Company Number: PHHY2011IN15313

PATIENT
  Age: 68 Year
  Sex: Female

DRUGS (1)
  1. FEMARA [Suspect]
     Indication: BREAST CANCER
     Dosage: UNK
     Route: 048

REACTIONS (8)
  - BREAST CANCER RECURRENT [None]
  - DRUG INEFFECTIVE [None]
  - LYMPHADENOPATHY [None]
  - HEPATIC STEATOSIS [None]
  - BLOOD GLUCOSE INCREASED [None]
  - BREAST CALCIFICATIONS [None]
  - BREAST MASS [None]
  - INTERSTITIAL LUNG DISEASE [None]
